FAERS Safety Report 8628182 (Version 3)
Quarter: 2013Q1

REPORT INFORMATION
  Report Type: Spontaneous
  Country: US (occurrence: US)
  Receive Date: 20120621
  Receipt Date: 20130218
  Transmission Date: 20140127
  Serious: Yes (Other)
  Sender: FDA-Public Use
  Company Number: US-ASTRAZENECA-2011SE62358

PATIENT
  Age: 51 Year
  Sex: Female
  Weight: 89.4 kg

DRUGS (18)
  1. SEROQUEL XR [Suspect]
     Indication: SLEEP DISORDER
     Route: 048
     Dates: start: 2011
  2. SEROQUEL XR [Suspect]
     Indication: NERVOUSNESS
     Route: 048
     Dates: start: 2011
  3. SEROQUEL XR [Suspect]
     Indication: MAJOR DEPRESSION
     Route: 048
     Dates: start: 2011
  4. SEROQUEL XR [Suspect]
     Indication: ANXIETY
     Route: 048
     Dates: start: 2011
  5. SEROQUEL XR [Suspect]
     Indication: DEPRESSION
     Route: 048
     Dates: start: 2011
  6. ATENOLOL [Suspect]
     Indication: HYPERTENSION
     Route: 048
  7. ATENOLOL [Suspect]
     Indication: BLOOD PRESSURE ABNORMAL
     Route: 048
  8. XANAX [Concomitant]
     Indication: NERVOUSNESS
  9. XANAX [Concomitant]
     Indication: ANXIETY
  10. XANAX [Concomitant]
     Indication: NERVOUSNESS
  11. XANAX [Concomitant]
     Indication: ANXIETY
  12. PERCOCET [Concomitant]
     Indication: BACK PAIN
     Dosage: 5/325 MG, THREE TIMES A DAY
     Route: 048
     Dates: start: 2010
  13. PERCOCET [Concomitant]
     Indication: PAIN IN EXTREMITY
     Dosage: 5/325 MG, THREE TIMES A DAY
     Route: 048
     Dates: start: 2010
  14. AMBIEN [Concomitant]
     Indication: SLEEP DISORDER
     Dates: start: 2008
  15. GABAPENTIN [Concomitant]
  16. HYDROCHLOROTHIAZIDE [Concomitant]
     Indication: DIURETIC THERAPY
  17. ZOLOFT [Concomitant]
  18. ZOLPIDEM [Concomitant]
     Indication: SLEEP DISORDER
     Route: 048

REACTIONS (16)
  - Haemorrhage [Unknown]
  - Pruritus [Unknown]
  - Stress [Unknown]
  - Learning disorder [Unknown]
  - Withdrawal syndrome [Unknown]
  - Panic attack [Unknown]
  - Malaise [Unknown]
  - Aphagia [Unknown]
  - Anxiety [Unknown]
  - Amnesia [Unknown]
  - Headache [Unknown]
  - Nervousness [Unknown]
  - Insomnia [Unknown]
  - Restlessness [Unknown]
  - Off label use [Unknown]
  - Drug dose omission [Unknown]
